FAERS Safety Report 7430424-X (Version None)
Quarter: 2011Q2

REPORT INFORMATION
  Report Type: 
  Country: None (occurrence: None)
  Receive Date: 20110421
  Receipt Date: 20110411
  Transmission Date: 20111010
  Serious: Yes (Hospitalization, Other)
  Sender: FDA-Public Use
  Company Number: US-ENDO PHARMACEUTICALS INC.-SOTA20110002

PATIENT
  Age: 59 Year
  Sex: Male

DRUGS (4)
  1. MULTAQ [Suspect]
     Route: 048
     Dates: start: 20110101
  2. SOTALOL HYDROCHLORIDE TABLETS [Suspect]
     Indication: ATRIAL FIBRILLATION
     Dosage: UNK
  3. PROGRAF [Suspect]
     Indication: LUNG TRANSPLANT
     Dosage: UNK
  4. MULTAQ [Suspect]
     Indication: ATRIAL FIBRILLATION
     Route: 048
     Dates: start: 20110201, end: 20110101

REACTIONS (4)
  - RENAL FAILURE [None]
  - TOXICITY TO VARIOUS AGENTS [None]
  - CARDIAC FAILURE [None]
  - DRUG INEFFECTIVE [None]
